FAERS Safety Report 5103831-8 (Version None)
Quarter: 2006Q3

REPORT INFORMATION
  Report Type: 
  Country: None (occurrence: None)
  Receive Date: 20060911
  Receipt Date: 20060828
  Transmission Date: 20061208
  Serious: Yes (Other)
  Sender: FDA-Public Use
  Company Number: 2006106427

PATIENT
  Age: 60 Year
  Sex: Female

DRUGS (1)
  1. PIROXICAM [Suspect]
     Indication: ARTHRALGIA
     Dosage: 40 MG (40 MG, 1 ), INTRAMUSCULAR
     Route: 030

REACTIONS (2)
  - ANAPHYLACTIC SHOCK [None]
  - SYNCOPE [None]
